FAERS Safety Report 24101059 (Version 1)
Quarter: 2024Q3

REPORT INFORMATION
  Report Type: Other
  Country: IT (occurrence: IT)
  Receive Date: 20240717
  Receipt Date: 20240717
  Transmission Date: 20241016
  Serious: Yes (Hospitalization, Other)
  Sender: Waylis
  Company Number: IT-WT-2024-38599763

PATIENT
  Age: 5 Year
  Sex: Male

DRUGS (1)
  1. BUSULFAN [Suspect]
     Active Substance: BUSULFAN
     Indication: Allogenic stem cell transplantation

REACTIONS (2)
  - Pulmonary toxicity [Recovered/Resolved]
  - Respiratory failure [Recovered/Resolved]
